FAERS Safety Report 9122033 (Version 1)
Quarter: 2013Q1

REPORT INFORMATION
  Report Type: Spontaneous
  Country: BR (occurrence: BR)
  Receive Date: 20130227
  Receipt Date: 20130227
  Transmission Date: 20140127
  Serious: Yes (Other)
  Sender: FDA-Public Use
  Company Number: BR-PFIZER INC-2013069572

PATIENT
  Sex: Male

DRUGS (1)
  1. TECTA [Suspect]
     Dosage: UNK
     Route: 048

REACTIONS (2)
  - Panic disorder [Unknown]
  - Depression [Unknown]
